FAERS Safety Report 4263657-4 (Version None)
Quarter: 2004Q1

REPORT INFORMATION
  Report Type: 
  Country: None (occurrence: None)
  Receive Date: 20040102
  Receipt Date: 20031222
  Transmission Date: 20041129
  Serious: No
  Sender: FDA-Public Use
  Company Number: 03P-163-0245635-00

PATIENT
  Age: 61 Year
  Sex: Male

DRUGS (1)
  1. HYTRIN [Suspect]
     Dosage: 10 MG, PER ORAL
     Route: 048

REACTIONS (4)
  - BACK INJURY [None]
  - FALL [None]
  - LIMB INJURY [None]
  - OVERDOSE [None]
